FAERS Safety Report 24781287 (Version 1)
Quarter: 2024Q4

REPORT INFORMATION
  Report Type: Spontaneous
  Country: US (occurrence: US)
  Receive Date: 20241227
  Receipt Date: 20241227
  Transmission Date: 20250114
  Serious: No
  Sender: ELI LILLY AND COMPANY
  Company Number: US-ELI_LILLY_AND_COMPANY-US202412010248

PATIENT
  Sex: Female

DRUGS (1)
  1. EBGLYSS [Suspect]
     Active Substance: LEBRIKIZUMAB-LBKZ
     Indication: Product used for unknown indication
     Dosage: UNK UNK, UNKNOWN
     Route: 065
     Dates: end: 20241130

REACTIONS (6)
  - Rash pruritic [Recovered/Resolved]
  - Skin abrasion [Unknown]
  - Skin burning sensation [Unknown]
  - Dry skin [Unknown]
  - Skin tightness [Unknown]
  - Insomnia [Unknown]
